FAERS Safety Report 25120518 (Version 2)
Quarter: 2025Q1

REPORT INFORMATION
  Report Type: Report from Study
  Country: BR (occurrence: BR)
  Receive Date: 20250325
  Receipt Date: 20250327
  Transmission Date: 20250408
  Serious: Yes (Death, Hospitalization)
  Sender: AKCEA THERAPEUTICS
  Company Number: BR-AKCEA THERAPEUTICS, INC.-2025IS000867

PATIENT

DRUGS (1)
  1. TEGSEDI [Suspect]
     Active Substance: INOTERSEN SODIUM
     Indication: Hereditary neuropathic amyloidosis
     Dosage: 284 MILLIGRAM, QW
     Route: 058

REACTIONS (4)
  - Cardiac arrest [Fatal]
  - Dengue fever [Fatal]
  - Acute respiratory failure [Fatal]
  - Metabolic acidosis [Fatal]

NARRATIVE: CASE EVENT DATE: 20250301
